FAERS Safety Report 18342849 (Version 1)
Quarter: 2020Q4

REPORT INFORMATION
  Report Type: Spontaneous
  Country: US (occurrence: US)
  Receive Date: 20201005
  Receipt Date: 20201005
  Transmission Date: 20210113
  Serious: No
  Sender: FDA-Public Use
  Company Number: US-MICRO LABS LIMITED-ML2020-01850

PATIENT
  Age: 56 Year
  Sex: Female
  Weight: 49.94 kg

DRUGS (2)
  1. CROMOLYN SODIUM ORAL SOLUTION 100 MG/5 ML [Suspect]
     Active Substance: CROMOLYN SODIUM
     Indication: MAST CELL ACTIVATION SYNDROME
     Dosage: STRENGTH:100MG/5ML 2 VIALS FOUR TIMES A DAY(OF STRENGTH 100MG/5ML),?ML PRODUCT SHE COULD TAKE 2 TO 3
     Dates: end: 202003
  2. TIROSINT [Concomitant]
     Active Substance: LEVOTHYROXINE SODIUM
     Indication: THYROID DISORDER
     Dosage: 75MG/ ONCE A DAY
     Route: 048

REACTIONS (8)
  - Tremor [Recovered/Resolved]
  - Malaise [Recovered/Resolved]
  - Tongue discomfort [Recovered/Resolved]
  - Hypersensitivity [Unknown]
  - Diarrhoea [Recovered/Resolved]
  - Nausea [Recovered/Resolved]
  - Product taste abnormal [Unknown]
  - Chest discomfort [Recovered/Resolved]
